FAERS Safety Report 25332736 (Version 1)
Quarter: 2025Q2

REPORT INFORMATION
  Report Type: Spontaneous
  Country: JP (occurrence: JP)
  Receive Date: 20250519
  Receipt Date: 20250519
  Transmission Date: 20250716
  Serious: Yes (Other)
  Sender: MERCK SHARP & DOHME LLC
  Company Number: JP-MSD-2405JPN002524J

PATIENT
  Age: 8 Decade
  Sex: Male

DRUGS (1)
  1. PEMBROLIZUMAB [Suspect]
     Active Substance: PEMBROLIZUMAB
     Indication: Tongue cancer metastatic
     Route: 065

REACTIONS (2)
  - Pemphigoid [Recovered/Resolved]
  - Immune system disorder [Recovered/Resolved]
